FAERS Safety Report 18799635 (Version 2)
Quarter: 2021Q2

REPORT INFORMATION
  Report Type: Report from Study
  Country: CL (occurrence: CL)
  Receive Date: 20210128
  Receipt Date: 20210408
  Transmission Date: 20210717
  Serious: Yes (Hospitalization, Other)
  Sender: FDA-Public Use
  Company Number: CL-JNJFOC-20210133480

PATIENT
  Age: 5 Decade
  Sex: Female

DRUGS (1)
  1. SIMPONI [Suspect]
     Active Substance: GOLIMUMAB
     Indication: ANKYLOSING SPONDYLITIS
     Route: 042

REACTIONS (6)
  - Overweight [Unknown]
  - Product dose omission issue [Unknown]
  - Vomiting [Unknown]
  - Pruritus [Unknown]
  - COVID-19 pneumonia [Unknown]
  - Hernia [Unknown]

NARRATIVE: CASE EVENT DATE: 202008
